FAERS Safety Report 16125068 (Version 2)
Quarter: 2019Q2

REPORT INFORMATION
  Report Type: Spontaneous
  Country: TR (occurrence: TR)
  Receive Date: 20190327
  Receipt Date: 20190408
  Transmission Date: 20190711
  Serious: Yes (Other)
  Sender: FDA-Public Use
  Company Number: TR-BAUSCH-BL-2019-009009

PATIENT
  Age: 59 Year
  Sex: Male

DRUGS (2)
  1. ARTIFICIAL TEARS [Concomitant]
     Active Substance: GLYCERIN\HYPROMELLOSES\POLYETHYLENE GLYCOL 400
     Indication: EYE LUBRICATION THERAPY
     Dosage: TRADE NAME NOT AVAILABLE, FREQUENCY: AS NEEDED
     Route: 047
     Dates: start: 20190210, end: 20190309
  2. ZYLET [Suspect]
     Active Substance: LOTEPREDNOL ETABONATE\TOBRAMYCIN
     Indication: EYE INFECTION
     Dosage: DOSE: 4X1
     Route: 047
     Dates: start: 20190210, end: 20190302

REACTIONS (2)
  - Dacryostenosis acquired [Recovered/Resolved]
  - Product use issue [Unknown]

NARRATIVE: CASE EVENT DATE: 2019
